FAERS Safety Report 7811937-5 (Version None)
Quarter: 2011Q4

REPORT INFORMATION
  Report Type: 
  Country: None (occurrence: None)
  Receive Date: 20111013
  Receipt Date: 20111007
  Transmission Date: 20120403
  Serious: Yes (Other)
  Sender: FDA-Public Use
  Company Number: PHEH2011US01378

PATIENT
  Sex: Female
  Weight: 55.782 kg

DRUGS (4)
  1. BLOOD TRANSFUSION, AUXILIARY PRODUCTS [Concomitant]
  2. EXJADE [Suspect]
     Indication: MYELODYSPLASTIC SYNDROME
     Dosage: 1250 MG, QD
     Route: 048
     Dates: start: 20090608, end: 20100801
  3. CYCLOSPORINE [Suspect]
  4. PREDNISONE [Suspect]

REACTIONS (2)
  - HEADACHE [None]
  - RENAL FAILURE [None]
